FAERS Safety Report 6045022-2 (Version None)
Quarter: 2009Q1

REPORT INFORMATION
  Report Type: 
  Country: None (occurrence: None)
  Receive Date: 20090116
  Receipt Date: 20090116
  Transmission Date: 20090719
  Serious: Yes (Disabling)
  Sender: FDA-Public Use
  Company Number: None

PATIENT
  Age: 38 Year
  Sex: Male
  Weight: 99.3377 kg

DRUGS (1)
  1. LIPITOR [Suspect]
     Indication: BLOOD CHOLESTEROL INCREASED
     Dosage: 20 MG DAILY
     Dates: start: 20041210, end: 20081231

REACTIONS (10)
  - ECONOMIC PROBLEM [None]
  - INJURY [None]
  - JOB DISSATISFACTION [None]
  - MALAISE [None]
  - MEMORY IMPAIRMENT [None]
  - MYALGIA [None]
  - MYOPATHY [None]
  - NEUROMYOPATHY [None]
  - NEUROPATHY PERIPHERAL [None]
  - PAIN [None]
